FAERS Safety Report 5778151-9 (Version None)
Quarter: 2008Q2

REPORT INFORMATION
  Report Type: 
  Country: None (occurrence: None)
  Receive Date: 20080617
  Receipt Date: 20080603
  Transmission Date: 20081010
  Serious: Yes (Other)
  Sender: FDA-Public Use
  Company Number: 2007-167974-NL

PATIENT
  Age: 38 Year
  Sex: Female
  Weight: 60 kg

DRUGS (1)
  1. MARVELON [Suspect]
     Indication: CONTRACEPTION
     Dosage: ORAL
     Route: 048
     Dates: start: 20070925, end: 20071111

REACTIONS (8)
  - ANAEMIA [None]
  - ANTIPHOSPHOLIPID ANTIBODIES [None]
  - CHEST DISCOMFORT [None]
  - CHOKING [None]
  - DYSPNOEA [None]
  - HYPOAESTHESIA [None]
  - PALPITATIONS [None]
  - THROMBOSIS [None]
